FAERS Safety Report 10487307 (Version 4)
Quarter: 2015Q1

REPORT INFORMATION
  Report Type: Spontaneous
  Country: FR (occurrence: FR)
  Receive Date: 20141001
  Receipt Date: 20150226
  Transmission Date: 20150720
  Serious: Yes (Other)
  Sender: FDA-Public Use
  Company Number: FR-PFIZER INC-2014266979

PATIENT
  Age: 77 Year
  Sex: Female
  Weight: 53 kg

DRUGS (3)
  1. NORFLOXACIN [Concomitant]
     Active Substance: NORFLOXACIN
     Indication: URINARY TRACT INFECTION
     Dosage: 400 MG, 2X/DAY
     Route: 048
     Dates: start: 20140912, end: 20140915
  2. TOVIAZ [Suspect]
     Active Substance: FESOTERODINE FUMARATE
     Indication: URINARY INCONTINENCE
     Dosage: 4 MG, 1X/DAY
     Route: 048
     Dates: start: 20140908, end: 20140922
  3. CIPROFLOXACIN. [Concomitant]
     Active Substance: CIPROFLOXACIN
     Indication: URINARY TRACT INFECTION
     Dosage: 500 MG, 2X/DAY
     Route: 048
     Dates: start: 20140915, end: 20140919

REACTIONS (4)
  - Abdominal symptom [Recovering/Resolving]
  - Cholestasis [Recovering/Resolving]
  - Drug-induced liver injury [Recovering/Resolving]
  - Hepatocellular injury [Recovered/Resolved]

NARRATIVE: CASE EVENT DATE: 2014
